FAERS Safety Report 5358055-6 (Version None)
Quarter: 2007Q2

REPORT INFORMATION
  Report Type: 
  Country: None (occurrence: None)
  Receive Date: 20070530
  Receipt Date: 20070105
  Transmission Date: 20071010
  Serious: Yes (Hospitalization, Other)
  Sender: FDA-Public Use
  Company Number: US200606000821

PATIENT
  Age: 42 Year
  Sex: Male
  Weight: 81.6 kg

DRUGS (5)
  1. ZYPREXA [Suspect]
     Indication: PSYCHOTIC DISORDER
     Dosage: 15 MG, 2/D
     Dates: start: 20031001, end: 20040501
  2. TEGRETOL [Concomitant]
  3. PAXIL [Concomitant]
  4. DEPAKOTE [Concomitant]
  5. SEROQUEL [Concomitant]

REACTIONS (4)
  - CONVULSION [None]
  - DIABETES MELLITUS [None]
  - PRESCRIBED OVERDOSE [None]
  - WEIGHT INCREASED [None]
